FAERS Safety Report 7693479-3 (Version None)
Quarter: 2011Q3

REPORT INFORMATION
  Report Type: 
  Country: None (occurrence: None)
  Receive Date: 20110819
  Receipt Date: 20110819
  Transmission Date: 20111222
  Serious: Yes (Other)
  Sender: FDA-Public Use
  Company Number: None

PATIENT
  Age: 57 Year
  Sex: Female
  Weight: 90.264 kg

DRUGS (1)
  1. LUNESTA [Suspect]
     Indication: INSOMNIA
     Dosage: 1
     Route: 048
     Dates: start: 20110729, end: 20110801

REACTIONS (3)
  - SUICIDAL IDEATION [None]
  - ANXIETY [None]
  - DEPRESSION [None]
